FAERS Safety Report 12999317 (Version 1)
Quarter: 2016Q4

REPORT INFORMATION
  Report Type: Spontaneous
  Country: US (occurrence: US)
  Receive Date: 20161205
  Receipt Date: 20161205
  Transmission Date: 20170207
  Serious: Yes (Other)
  Sender: FDA-Public Use
  Company Number: US-GALDERMA-US16008007

PATIENT
  Age: 27 Year
  Sex: Male

DRUGS (11)
  1. RIMETHOPRIM AND SULFAMETHOXAZOLE [Concomitant]
  2. METRONIDAZOLE. [Suspect]
     Active Substance: METRONIDAZOLE
     Indication: ROSACEA
     Route: 061
  3. DESONIDE. [Suspect]
     Active Substance: DESONIDE
     Indication: ROSACEA
     Route: 061
  4. ISOTRETINOIN [Concomitant]
     Active Substance: ISOTRETINOIN
     Route: 048
  5. PIPERACILLIN/TAZOBACTAM [Concomitant]
     Active Substance: PIPERACILLIN SODIUM\TAZOBACTAM SODIUM
     Dates: start: 201505
  6. CYCLOSPORINE. [Concomitant]
     Active Substance: CYCLOSPORINE
  7. MEDROL [Concomitant]
     Active Substance: METHYLPREDNISOLONE
  8. MINOCYCLINE [Concomitant]
     Active Substance: MINOCYCLINE\MINOCYCLINE HYDROCHLORIDE
  9. GENTAMICIN. [Concomitant]
     Active Substance: GENTAMICIN
  10. VANCOMYCIN [Concomitant]
     Active Substance: VANCOMYCIN
     Route: 042
     Dates: start: 201505
  11. TRIAMCINOLONE [Concomitant]
     Active Substance: TRIAMCINOLONE

REACTIONS (3)
  - Condition aggravated [Recovered/Resolved]
  - Pyoderma [Recovered/Resolved]
  - Intentional product use issue [Recovered/Resolved]
